FAERS Safety Report 4872992-8 (Version None)
Quarter: 2005Q4

REPORT INFORMATION
  Report Type: 
  Country: None (occurrence: None)
  Receive Date: 20051201
  Receipt Date: 20050802
  Transmission Date: 20060501
  Serious: No
  Sender: FDA-Public Use
  Company Number: 2005PV000861

PATIENT
  Age: 69 Year
  Sex: Female
  Weight: 77.1115 kg

DRUGS (15)
  1. BYETTA [Suspect]
     Indication: DIABETES MELLITUS NON-INSULIN-DEPENDENT
     Dosage: 5 MCG; BID; SC
     Route: 058
     Dates: start: 20050726
  2. GLUCOPHAGE [Concomitant]
  3. EVISTA [Concomitant]
  4. SYNTHROID [Concomitant]
  5. NADOLOL [Concomitant]
  6. LIPITOR [Concomitant]
  7. NIASPAN [Concomitant]
  8. ALREX [Concomitant]
  9. RESTASIS [Concomitant]
  10. NEURONTIN [Concomitant]
  11. ECOTRIN [Concomitant]
  12. CALCIUM GLUCONATE [Concomitant]
  13. CENTRUM SILVER [Concomitant]
  14. TRIAN/HCTZ [Concomitant]
  15. AVANDAMET [Concomitant]

REACTIONS (6)
  - CONSTIPATION [None]
  - DIZZINESS [None]
  - INJECTION SITE BRUISING [None]
  - NAUSEA [None]
  - NERVOUSNESS [None]
  - VOMITING [None]
